FAERS Safety Report 7307442-5 (Version None)
Quarter: 2011Q1

REPORT INFORMATION
  Report Type: 
  Country: None (occurrence: None)
  Receive Date: 20110119
  Receipt Date: 20101110
  Transmission Date: 20110831
  Serious: Yes (Other)
  Sender: FDA-Public Use
  Company Number: A-US2010-41590

PATIENT
  Age: 61 Year
  Sex: Female

DRUGS (3)
  1. TRACLEER [Suspect]
     Indication: PULMONARY ARTERIAL HYPERTENSION
     Dosage: 125 MG, BID, ORAL, 62.5 MG, BID, ORAL
     Route: 048
     Dates: start: 20100820, end: 20100928
  2. TRACLEER [Suspect]
     Indication: PULMONARY ARTERIAL HYPERTENSION
     Dosage: 125 MG, BID, ORAL, 62.5 MG, BID, ORAL
     Route: 048
     Dates: start: 20100929, end: 20101110
  3. COUMADIN [Concomitant]

REACTIONS (5)
  - FLUID RETENTION [None]
  - OXYGEN SATURATION DECREASED [None]
  - RESTLESS LEGS SYNDROME [None]
  - NO THERAPEUTIC RESPONSE [None]
  - PRURITUS [None]
